FAERS Safety Report 5616668-8 (Version None)
Quarter: 2008Q1

REPORT INFORMATION
  Report Type: 
  Country: None (occurrence: None)
  Receive Date: 20080207
  Receipt Date: 20080131
  Transmission Date: 20080703
  Serious: Yes (Other)
  Sender: FDA-Public Use
  Company Number: NSADSS2001032903

PATIENT
  Age: 7 Year
  Sex: Female

DRUGS (4)
  1. REMICADE [Suspect]
     Dosage: FIFTH INFUSION
     Route: 041
     Dates: start: 20010301
  2. REMICADE [Suspect]
     Indication: RHEUMATOID ARTHRITIS
     Route: 041
     Dates: start: 20010301
  3. METHOTREXATE [Concomitant]
     Route: 065
  4. FOLIC ACID [Concomitant]

REACTIONS (1)
  - AMNESIA [None]
